FAERS Safety Report 12430514 (Version 1)
Quarter: 2016Q2

REPORT INFORMATION
  Report Type: Report from Study
  Country: US (occurrence: US)
  Receive Date: 20160602
  Receipt Date: 20160602
  Transmission Date: 20160815
  Serious: No
  Sender: FDA-Public Use
  Company Number: US-MDT-ADR-2016-00178

PATIENT
  Age: 72 Year
  Sex: Female

DRUGS (3)
  1. COMPOUNDED BACLOFEN [Suspect]
     Active Substance: BACLOFEN
     Dosage: 125.01 MCG/DAY
     Route: 037
     Dates: start: 20140603
  2. MORPHINE [Suspect]
     Active Substance: MORPHINE
     Dosage: 0.9985 MG/DAY
     Route: 037
     Dates: start: 20140528, end: 20140603
  3. MORPHINE [Suspect]
     Active Substance: MORPHINE
     Dosage: 1.2501 MG/DAY
     Route: 037
     Dates: start: 20140603

REACTIONS (1)
  - Muscular weakness [Recovered/Resolved]

NARRATIVE: CASE EVENT DATE: 20140605
